FAERS Safety Report 8459043 (Version 3)
Quarter: 2013Q2

REPORT INFORMATION
  Report Type: Spontaneous
  Country: US (occurrence: US)
  Receive Date: 20120314
  Receipt Date: 20130419
  Transmission Date: 20140414
  Serious: Yes (Hospitalization)
  Sender: FDA-Public Use
  Company Number: US-BAYER-2012-022735

PATIENT
  Age: 40 Year
  Sex: Female
  Weight: 95.24 kg

DRUGS (10)
  1. YAZ [Suspect]
     Indication: CONTRACEPTION
     Dosage: UNK
     Dates: start: 200801, end: 200909
  2. YAZ [Suspect]
     Indication: MENORRHAGIA
  3. BUPROPION [Concomitant]
  4. PRISTIQ [Concomitant]
     Dosage: 50 MG, UNK
  5. FLONASE [Concomitant]
  6. ZYRTEC [Concomitant]
  7. IBUPROFEN [Concomitant]
  8. LORTAB [Concomitant]
  9. ADVIL [Concomitant]
  10. HYDROCODONE [Concomitant]

REACTIONS (8)
  - Pulmonary embolism [None]
  - Chest pain [None]
  - Injury [None]
  - Anxiety [None]
  - Anhedonia [None]
  - Pain [None]
  - Fear of disease [None]
  - Psychological trauma [None]
